FAERS Safety Report 11205176 (Version 1)
Quarter: 2015Q2

REPORT INFORMATION
  Report Type: Spontaneous
  Country: FR (occurrence: FR)
  Receive Date: 20150622
  Receipt Date: 20150622
  Transmission Date: 20150821
  Serious: Yes (Death)
  Sender: FDA-Public Use
  Company Number: FR-AMGEN-FRASP2015059354

PATIENT
  Age: 72 Year
  Sex: Female

DRUGS (1)
  1. VECTIBIX [Suspect]
     Active Substance: PANITUMUMAB
     Indication: ADENOCARCINOMA OF COLON
     Dosage: 20 MG/ML, UNK
     Route: 042
     Dates: start: 201411, end: 201505

REACTIONS (2)
  - Cardiac failure [Fatal]
  - Acute coronary syndrome [Fatal]

NARRATIVE: CASE EVENT DATE: 20150509
